FAERS Safety Report 17162581 (Version 1)
Quarter: 2019Q4

REPORT INFORMATION
  Report Type: Report from Study
  Country: None (occurrence: CO)
  Receive Date: 20191217
  Receipt Date: 20191217
  Transmission Date: 20200122
  Serious: Yes (Other)
  Sender: FDA-Public Use
  Company Number: CO-ABBVIE-19K-036-3006496-00

PATIENT
  Age: 3 Month
  Sex: Male
  Weight: 5 kg

DRUGS (1)
  1. SYNAGIS [Suspect]
     Active Substance: PALIVIZUMAB
     Indication: PREMATURE BABY
     Route: 030
     Dates: start: 20191018, end: 20191018

REACTIONS (3)
  - Pyrexia [Unknown]
  - Inguinal hernia [Unknown]
  - Inflammation [Unknown]

NARRATIVE: CASE EVENT DATE: 20191106
